FAERS Safety Report 13181773 (Version 1)
Quarter: 2017Q1

REPORT INFORMATION
  Report Type: Spontaneous
  Country: US (occurrence: US)
  Receive Date: 20170202
  Receipt Date: 20170202
  Transmission Date: 20170428
  Serious: Yes (Other)
  Sender: FDA-Public Use
  Company Number: US-INCYTE CORPORATION-2016IN006523

PATIENT
  Age: 61 Year
  Sex: Male
  Weight: 80.73 kg

DRUGS (24)
  1. HYDROCODONE BITARTRATE AND ACETAMINOPHEN [Concomitant]
     Active Substance: ACETAMINOPHEN\HYDROCODONE BITARTRATE
     Indication: PRODUCT USED FOR UNKNOWN INDICATION
     Dosage: 1 TAB, Q 4-6 HRS PRN FOR 30 DAYS
     Route: 048
     Dates: start: 20160702
  2. JAKAFI [Suspect]
     Active Substance: RUXOLITINIB
     Indication: MYELOFIBROSIS
     Dosage: 10 MG, BID
     Route: 048
     Dates: start: 20151108, end: 20160812
  3. MOMELOTINIB [Concomitant]
     Active Substance: MOMELOTINIB
     Indication: PRODUCT USED FOR UNKNOWN INDICATION
     Dosage: UNK
     Dates: start: 201610, end: 20161122
  4. JAKAFI [Suspect]
     Active Substance: RUXOLITINIB
     Dosage: 5 MG, BID
     Route: 048
     Dates: start: 20161122, end: 20170112
  5. LENALIDOMIDE [Concomitant]
     Active Substance: LENALIDOMIDE
     Indication: PRODUCT USED FOR UNKNOWN INDICATION
  6. LIDOCAINE AND PRILOCAINE [Concomitant]
     Active Substance: LIDOCAINE\PRILOCAINE
     Indication: PRODUCT USED FOR UNKNOWN INDICATION
     Dosage: PRN
     Route: 061
     Dates: start: 20160828
  7. MORPHINE [Concomitant]
     Active Substance: MORPHINE
     Dosage: 90 MG, Q8H
     Route: 048
     Dates: start: 20161122
  8. FUROSEMIDE. [Concomitant]
     Active Substance: FUROSEMIDE
     Indication: PRODUCT USED FOR UNKNOWN INDICATION
     Dosage: 20 MG, QD FOR 30 DAYS
     Route: 048
     Dates: start: 20160927
  9. MORPHINE [Concomitant]
     Active Substance: MORPHINE
     Dosage: 30-45 MG, Q4H PRN
     Route: 048
     Dates: start: 20161122
  10. SIMVASTATIN. [Concomitant]
     Active Substance: SIMVASTATIN
     Indication: PRODUCT USED FOR UNKNOWN INDICATION
     Dosage: 20 MG, QD FOR 30 DAYS
     Route: 048
     Dates: start: 20151221
  11. PREDNISONE. [Concomitant]
     Active Substance: PREDNISONE
     Indication: PRODUCT USED FOR UNKNOWN INDICATION
  12. MORPHINE [Concomitant]
     Active Substance: MORPHINE
     Indication: ABDOMINAL PAIN
     Dosage: 15-30 MG, Q 4HOUR PRN
     Route: 048
  13. ONDANSETRON HCL [Concomitant]
     Active Substance: ONDANSETRON HYDROCHLORIDE
     Indication: PRODUCT USED FOR UNKNOWN INDICATION
     Dosage: 4 MG, PRN FOR 15 DAYS
     Route: 048
     Dates: start: 20151220
  14. INFLUENZA VACCINE [Concomitant]
     Active Substance: INFLUENZA VIRUS VACCINE
     Indication: PROPHYLAXIS
     Dosage: 0.5 ML, UNK
     Route: 030
     Dates: start: 20161109, end: 20161109
  15. ALPRAZOLAM. [Concomitant]
     Active Substance: ALPRAZOLAM
     Indication: PRODUCT USED FOR UNKNOWN INDICATION
     Dosage: 1 MG, UNK
     Dates: start: 20160916
  16. MORPHINE [Concomitant]
     Active Substance: MORPHINE
     Indication: PRODUCT USED FOR UNKNOWN INDICATION
     Dosage: 60 MG, Q8H
     Route: 048
     Dates: start: 20161108, end: 20170113
  17. POLYETHYLENE GLYCOL 3350. [Concomitant]
     Active Substance: POLYETHYLENE GLYCOL 3350
     Indication: PRODUCT USED FOR UNKNOWN INDICATION
     Dosage: 17 G, PRN
     Route: 048
     Dates: start: 20160218
  18. JAKAFI [Suspect]
     Active Substance: RUXOLITINIB
     Dosage: 10 MG, BID
     Route: 048
     Dates: start: 20170113
  19. PACRITINIB [Concomitant]
     Active Substance: PACRITINIB
     Indication: PRIMARY MYELOFIBROSIS
     Dosage: UNK
     Dates: end: 2016
  20. ASPIRIN                            /00002701/ [Concomitant]
     Active Substance: ASPIRIN
     Indication: PRODUCT USED FOR UNKNOWN INDICATION
     Dosage: 81 MG, QD
     Route: 048
     Dates: start: 20150721
  21. METOPROLOL TARTRATE. [Concomitant]
     Active Substance: METOPROLOL TARTRATE
     Indication: PRODUCT USED FOR UNKNOWN INDICATION
     Dosage: 75 MG, BID
     Route: 048
     Dates: start: 20160717
  22. PROCHLORPERAZINE MALEATE. [Concomitant]
     Active Substance: PROCHLORPERAZINE MALEATE
     Indication: PRODUCT USED FOR UNKNOWN INDICATION
     Dosage: 10 MG, Q6H PRN
     Route: 048
     Dates: start: 20160909
  23. ALLOPURINOL. [Concomitant]
     Active Substance: ALLOPURINOL
     Indication: PRODUCT USED FOR UNKNOWN INDICATION
     Dosage: 300 MG, QD FOR 30 DAYS
     Route: 048
     Dates: start: 20151220
  24. COLCHICINE. [Concomitant]
     Active Substance: COLCHICINE
     Indication: PRODUCT USED FOR UNKNOWN INDICATION
     Dosage: 2 TABS W/ACUTE FLARE, THEN 1 TAB AN HOUR LATER;  THEN1 TAB Q 12HR TILL PAIN RELIEVED
     Dates: start: 20151220

REACTIONS (21)
  - Splenomegaly [Unknown]
  - Haemoglobin decreased [Unknown]
  - Insomnia [Unknown]
  - Oedema peripheral [Unknown]
  - Dyspnoea exertional [Unknown]
  - Bone pain [Unknown]
  - White blood cell count decreased [Unknown]
  - Therapeutic response decreased [Unknown]
  - Thrombocytopenia [Unknown]
  - Gait disturbance [Unknown]
  - Essential hypertension [Unknown]
  - Arthritis [Unknown]
  - Pancytopenia [Unknown]
  - Fatigue [Unknown]
  - Carotid arteriosclerosis [Unknown]
  - Petechiae [Unknown]
  - Abdominal pain [Recovering/Resolving]
  - Depression [Unknown]
  - Anxiety [Unknown]
  - Gout [Unknown]
  - Myelofibrosis [Unknown]

NARRATIVE: CASE EVENT DATE: 20160812
